FAERS Safety Report 8980650 (Version 3)
Quarter: 2013Q4

REPORT INFORMATION
  Report Type: Report from Study
  Country: US (occurrence: US)
  Receive Date: 20121221
  Receipt Date: 20131010
  Transmission Date: 20140711
  Serious: Yes (Other)
  Sender: FDA-Public Use
  Company Number: PHEH2012US024801

PATIENT
  Age: 77 Year
  Sex: Male

DRUGS (6)
  1. TOBI [Suspect]
     Indication: PNEUMONITIS
     Dosage: 300 MG, BID
     Dates: start: 201107, end: 20120930
  2. NORVASC [Concomitant]
     Indication: HYPERTENSION
     Dosage: 1 DF, DAILY
     Route: 048
     Dates: start: 1999
  3. DIOVAN [Concomitant]
     Indication: HYPERTENSION
     Dosage: 1 DF, DAILY
     Route: 048
     Dates: start: 2007
  4. NIASPAN [Concomitant]
     Indication: BLOOD CHOLESTEROL ABNORMAL
     Dosage: 1 DF, DAILY
     Route: 048
     Dates: start: 2007
  5. FUROSEMIDE [Concomitant]
     Indication: SWELLING
     Dosage: 1 DF DAILY OR AS NEEDED
     Route: 048
     Dates: start: 2000
  6. LUNESTA [Concomitant]
     Indication: INSOMNIA
     Dosage: UNK UKN, AT BEDTIME
     Route: 048
     Dates: start: 2009

REACTIONS (4)
  - Vocal cord thickening [Not Recovered/Not Resolved]
  - Oropharyngeal discomfort [Not Recovered/Not Resolved]
  - Dysphonia [Not Recovered/Not Resolved]
  - Vocal cord paralysis [Not Recovered/Not Resolved]
